FAERS Safety Report 10189764 (Version 2)
Quarter: 2014Q2

REPORT INFORMATION
  Report Type: Report from Study
  Country: JP (occurrence: JP)
  Receive Date: 20140522
  Receipt Date: 20140522
  Transmission Date: 20141212
  Serious: Yes (Hospitalization)
  Sender: FDA-Public Use
  Company Number: JP-B.I. PHARMACEUTICALS,INC./RIDGEFIELD-2012-BP-20893NB

PATIENT
  Age: 80 Year
  Sex: Female
  Weight: 56.3 kg

DRUGS (6)
  1. PRAZAXA [Suspect]
     Indication: CEREBROVASCULAR ACCIDENT PROPHYLAXIS
     Dosage: 220 MG
     Route: 048
     Dates: start: 20120306, end: 20130612
  2. ADALAT-CR [Concomitant]
     Dosage: 40 MG
     Route: 048
  3. LIPITOR [Concomitant]
     Dosage: 10 MG
     Route: 048
  4. AMARYL [Concomitant]
     Dosage: 1 MG
     Route: 048
  5. METHYCOBAL [Concomitant]
     Dosage: 1500 MCG
     Route: 048
  6. PARIET [Concomitant]
     Dosage: 10 MG
     Route: 048

REACTIONS (12)
  - Hypoglycaemia [Recovered/Resolved]
  - Cardiac failure congestive [Recovered/Resolved]
  - Heart rate increased [Recovered/Resolved]
  - White blood cell count decreased [Not Recovered/Not Resolved]
  - Blood pressure increased [Recovered/Resolved]
  - Heart rate increased [Recovered/Resolved]
  - Heart rate increased [Recovered/Resolved]
  - Bronchitis chronic [Recovered/Resolved]
  - Blood pressure increased [Recovered/Resolved]
  - Anaemia [Recovered/Resolved]
  - Hyperuricaemia [Recovered/Resolved]
  - Decreased appetite [Unknown]
